FAERS Safety Report 7449677-7 (Version None)
Quarter: 2011Q2

REPORT INFORMATION
  Report Type: 
  Country: None (occurrence: None)
  Receive Date: 20110421
  Receipt Date: 20110411
  Transmission Date: 20111010
  Serious: Yes (Death, Disabling)
  Sender: FDA-Public Use
  Company Number: TCI2011A02179

PATIENT
  Age: 75 Year
  Sex: Female

DRUGS (5)
  1. ACTOS [Suspect]
     Indication: TYPE 2 DIABETES MELLITUS
     Dosage: 15 MG (15 MG,1 D)
     Route: 048
     Dates: start: 20090129, end: 20100228
  2. AMLODIPINE [Concomitant]
  3. SULFONAMIDES, URES DERIVATIES [Concomitant]
  4. AVCAPRO (IRBESARTAN) [Concomitant]
  5. HMG COA REDUTASE INHIBITORS [Concomitant]

REACTIONS (4)
  - GAIT DISTURBANCE [None]
  - OEDEMA PERIPHERAL [None]
  - SPINOCEREBELLAR DISORDER [None]
  - DIZZINESS [None]
